FAERS Safety Report 20611622 (Version 2)
Quarter: 2022Q1

REPORT INFORMATION
  Report Type: Report from Study
  Country: US (occurrence: US)
  Receive Date: 20220318
  Receipt Date: 20220331
  Transmission Date: 20220423
  Serious: Yes (Hospitalization, Other)
  Sender: FDA-Public Use
  Company Number: US-PFIZER INC-202200383853

PATIENT
  Age: 73 Year
  Sex: Female

DRUGS (3)
  1. IBRANCE [Suspect]
     Active Substance: PALBOCICLIB
     Indication: Breast cancer female
     Dosage: 125 MG, CYCLIC (DAILY 21/7)
     Route: 048
     Dates: start: 20220214, end: 20220219
  2. FASLODEX [Concomitant]
     Active Substance: FULVESTRANT
     Dosage: EVERY 2 WEEKS
  3. FASLODEX [Concomitant]
     Active Substance: FULVESTRANT
     Dosage: MONTHLY

REACTIONS (1)
  - Gastric ulcer [Unknown]
